FAERS Safety Report 25257710 (Version 2)
Quarter: 2025Q3

REPORT INFORMATION
  Report Type: Spontaneous
  Country: US (occurrence: US)
  Receive Date: 20250430
  Receipt Date: 20250731
  Transmission Date: 20251021
  Serious: Yes (Hospitalization)
  Sender: INCYTE
  Company Number: US-INCYTE CORPORATION-2025IN004507

PATIENT
  Age: 49 Year

DRUGS (3)
  1. JAKAFI [Suspect]
     Active Substance: RUXOLITINIB
     Indication: Chronic lymphocytic leukaemia
     Dosage: 20 MILLIGRAM, BID
  2. JAKAFI [Suspect]
     Active Substance: RUXOLITINIB
     Dosage: 15 MILLIGRAM, BID
  3. NIVESTYM [Interacting]
     Active Substance: FILGRASTIM-AAFI
     Route: 065

REACTIONS (4)
  - Infection [Unknown]
  - Neutrophil count decreased [Unknown]
  - Inhibitory drug interaction [Unknown]
  - Off label use [Unknown]
